FAERS Safety Report 7236197-8 (Version None)
Quarter: 2010Q4

REPORT INFORMATION
  Report Type: 
  Country: None (occurrence: None)
  Receive Date: 20101130
  Receipt Date: 20100728
  Transmission Date: 20110411
  Serious: Yes (Other)
  Sender: FDA-Public Use
  Company Number: 2010BH018851

PATIENT
  Age: 13 Month
  Sex: Male
  Weight: 10.6 kg

DRUGS (5)
  1. ADVATE [Suspect]
     Indication: FACTOR VIII DEFICIENCY
     Dosage: 623 IU;ONCE;IV ; ONCE;IV ; AS NEEDED;IV ; AS NEEDED;IV
     Route: 042
     Dates: start: 20100506, end: 20100506
  2. ADVATE [Suspect]
     Indication: FACTOR VIII DEFICIENCY
     Dosage: 623 IU;ONCE;IV ; ONCE;IV ; AS NEEDED;IV ; AS NEEDED;IV
     Route: 042
     Dates: start: 20100608, end: 20100608
  3. ADVATE [Suspect]
     Indication: FACTOR VIII DEFICIENCY
     Dosage: 623 IU;ONCE;IV ; ONCE;IV ; AS NEEDED;IV ; AS NEEDED;IV
     Route: 042
     Dates: start: 20100610, end: 20100610
  4. ADVATE [Suspect]
     Indication: FACTOR VIII DEFICIENCY
     Dosage: 623 IU;ONCE;IV ; ONCE;IV ; AS NEEDED;IV ; AS NEEDED;IV
     Route: 042
     Dates: start: 20100702, end: 20100702
  5. MULTI-VITAMINS [Concomitant]

REACTIONS (1)
  - FACTOR VIII INHIBITION [None]
